FAERS Safety Report 5256184-9 (Version None)
Quarter: 2007Q1

REPORT INFORMATION
  Report Type: 
  Country: None (occurrence: None)
  Receive Date: 20070306
  Receipt Date: 20070228
  Transmission Date: 20070707
  Serious: Yes (Other)
  Sender: FDA-Public Use
  Company Number: 2007UW03905

PATIENT
  Age: 88 Year
  Sex: Male

DRUGS (1)
  1. ZOLADEX [Suspect]
     Indication: PROSTATE CANCER
     Route: 058

REACTIONS (5)
  - BLADDER PAIN [None]
  - DRUG INEFFECTIVE [None]
  - DYSURIA [None]
  - ILL-DEFINED DISORDER [None]
  - MALAISE [None]
